FAERS Safety Report 19865335 (Version 1)
Quarter: 2021Q3

REPORT INFORMATION
  Report Type: Spontaneous
  Country: US (occurrence: US)
  Receive Date: 20210921
  Receipt Date: 20210921
  Transmission Date: 20211014
  Serious: No
  Sender: FDA-Public Use
  Company Number: US-BAUSCH-BL-2021-031390

PATIENT
  Age: 72 Year
  Sex: Female
  Weight: 77.18 kg

DRUGS (1)
  1. LUMIFY [Suspect]
     Active Substance: BRIMONIDINE TARTRATE
     Indication: OCULAR HYPERAEMIA
     Route: 047
     Dates: start: 20210902, end: 20210902

REACTIONS (4)
  - Instillation site pain [Recovering/Resolving]
  - Instillation site swelling [Recovering/Resolving]
  - Lacrimation increased [Recovering/Resolving]
  - Instillation site erythema [Recovering/Resolving]

NARRATIVE: CASE EVENT DATE: 20210902
